FAERS Safety Report 20954476 (Version 1)
Quarter: 2022Q2

REPORT INFORMATION
  Report Type: Spontaneous
  Country: IR (occurrence: IR)
  Receive Date: 20220614
  Receipt Date: 20220614
  Transmission Date: 20220721
  Serious: Yes (Death, Other)
  Sender: FDA-Public Use
  Company Number: IR-SUN PHARMACEUTICAL INDUSTRIES LTD-2022R1-337764

PATIENT
  Age: 8 Year
  Sex: Female

DRUGS (3)
  1. AZITHROMYCIN [Suspect]
     Active Substance: AZITHROMYCIN
     Indication: COVID-19 pneumonia
     Dosage: 60 MILLIGRAM
     Route: 065
  2. VANCOMYCIN HYDROCHLORIDE [Suspect]
     Active Substance: VANCOMYCIN HYDROCHLORIDE
     Indication: COVID-19 pneumonia
     Dosage: 240 MILLIGRAM/UP TO THREE DOSES
     Route: 042
  3. TAMIFLU [Suspect]
     Active Substance: OSELTAMIVIR PHOSPHATE
     Indication: COVID-19 pneumonia
     Dosage: 75 MILLIGRAM/THREE TABLETS
     Route: 065

REACTIONS (2)
  - Acute respiratory distress syndrome [Fatal]
  - Drug ineffective [Unknown]
